FAERS Safety Report 7539058-X (Version None)
Quarter: 2011Q2

REPORT INFORMATION
  Report Type: 
  Country: None (occurrence: None)
  Receive Date: 20110610
  Receipt Date: 20010216
  Transmission Date: 20111010
  Serious: Yes (Death, Other)
  Sender: FDA-Public Use
  Company Number: PHFR2000GB01697

PATIENT
  Sex: Male

DRUGS (4)
  1. CLOMIPRAMINE HYDROCHLORIDE [Concomitant]
     Dosage: 25 MG, DAILY
     Route: 048
  2. VALPROATE SODIUM [Concomitant]
     Dosage: 200 MG, DAILY
     Route: 048
  3. CLOZARIL [Suspect]
     Dosage: 500 MG, DAILY
     Route: 048
     Dates: start: 19960801
  4. CLOZARIL [Suspect]
     Indication: SCHIZOPHRENIA
     Dosage: 500 MG, DAILY
     Route: 048
     Dates: start: 19911008, end: 19951001

REACTIONS (1)
  - CHOKING [None]
